FAERS Safety Report 22525749 (Version 1)
Quarter: 2023Q2

REPORT INFORMATION
  Report Type: Spontaneous
  Country: KR (occurrence: KR)
  Receive Date: 20230606
  Receipt Date: 20230606
  Transmission Date: 20230722
  Serious: Yes (Hospitalization)
  Sender: FDA-Public Use
  Company Number: KR-ORGANON-O2305KOR003210

PATIENT
  Age: 85 Year
  Sex: Female
  Weight: 50.6 kg

DRUGS (10)
  1. COZAAR [Suspect]
     Active Substance: LOSARTAN POTASSIUM
     Dosage: 50 MILLIGRAM, 1 DAY (FILM-COATED TABLETS)
     Route: 048
     Dates: start: 20130824
  2. PILOCARPINE HYDROCHLORIDE [Concomitant]
     Active Substance: PILOCARPINE HYDROCHLORIDE
     Dosage: 5 MILLIGRAM, 0.5 DAY
     Route: 048
     Dates: start: 20200227
  3. ESCITALOPRAM OXALATE [Concomitant]
     Active Substance: ESCITALOPRAM OXALATE
     Dosage: 5 MILLIGRAM, 1 DAY
     Route: 048
     Dates: start: 20140428
  4. CARVEDILOL [Concomitant]
     Active Substance: CARVEDILOL
     Dosage: 6.25 MILLIGRAM, 0.5 DAY (UNCOATED TABLET)
     Route: 048
     Dates: start: 20170620
  5. EZETIMIBE\SIMVASTATIN [Concomitant]
     Active Substance: EZETIMIBE\SIMVASTATIN
     Dosage: 10 MILLIGRAM, 1 DAY (UNCAOTED TABLET)
     Route: 048
     Dates: start: 20100415
  6. SPIRONOLACTONE [Concomitant]
     Active Substance: SPIRONOLACTONE
     Dosage: 12.5 MILLIGRAM, 1 DAY
     Route: 048
     Dates: start: 20191210
  7. SODIUM HYALURONATE [Concomitant]
     Active Substance: HYALURONATE SODIUM
     Dosage: 0.5 MILLILITER, 0.33 DAY, (FORMULATION: OPHTHALMIC SOLUTION, ROUTE REPORTED AS EYE)
     Route: 047
     Dates: start: 20190328
  8. DORZOLAMIDE HYDROCHLORIDE\TIMOLOL MALEATE [Concomitant]
     Active Substance: DORZOLAMIDE HYDROCHLORIDE\TIMOLOL MALEATE
     Dosage: 0.5 MILLILITER, 0.5 DAY (FORMULATION: OPHTHALMIC SOLUTION, ROUTE REPORTED AS EYE)
     Route: 047
     Dates: start: 20081127
  9. LATANOPROST [Concomitant]
     Active Substance: LATANOPROST
     Dosage: 0.5 MILLILITER, 1 DAY (FORMULATION: OPHTHALMIC SOLUTION, ROUTE REPORTED AS EYE)
     Route: 047
     Dates: start: 20081219
  10. FUROSEMIDE [Concomitant]
     Active Substance: FUROSEMIDE
     Dosage: 20 MILLIGRAM, 1 DAY (UNCOATED TABLET)
     Route: 048
     Dates: start: 20130824

REACTIONS (1)
  - Pyrexia [Recovered/Resolved]

NARRATIVE: CASE EVENT DATE: 20200325
